FAERS Safety Report 9922175 (Version 1)
Quarter: 2014Q1

REPORT INFORMATION
  Report Type: Spontaneous
  Country: BR (occurrence: BR)
  Receive Date: 20140225
  Receipt Date: 20140225
  Transmission Date: 20141002
  Serious: Yes (Other)
  Sender: FDA-Public Use
  Company Number: BR-PFIZER INC-2014052520

PATIENT
  Age: 58 Year
  Sex: Male
  Weight: 82 kg

DRUGS (8)
  1. ATENOLOL [Suspect]
     Indication: HYPERTENSION
     Dosage: 100 MG, 2X/DAY
     Route: 048
     Dates: start: 201209
  2. METFORMIN HCL [Suspect]
     Indication: DIABETES MELLITUS
     Dosage: 850 MG, 2X/DAY
     Route: 048
     Dates: start: 201209
  3. BRILINTA [Suspect]
     Indication: PROPHYLAXIS
     Dosage: 90 MG, 2X/DAY
     Route: 048
     Dates: start: 201209
  4. RENITEC [Concomitant]
     Dosage: 20 MG, 2X/DAY
     Route: 048
     Dates: start: 201209
  5. MONOCORDIL [Concomitant]
     Dosage: 20 MG, 2X/DAY
     Route: 048
     Dates: start: 201209
  6. AMLODIPINE [Concomitant]
     Dosage: 10 MG, 2X/DAY
     Route: 048
     Dates: start: 201209
  7. PANTOPRAZOLE [Concomitant]
     Dosage: 40 MG, 2X/DAY
     Route: 048
     Dates: start: 201209
  8. SOMALGIN [Concomitant]
     Dosage: 100 MG, DAILY
     Route: 048
     Dates: start: 201209

REACTIONS (3)
  - Weight decreased [Not Recovered/Not Resolved]
  - Dyspnoea [Not Recovered/Not Resolved]
  - Off label use [Not Recovered/Not Resolved]
